FAERS Safety Report 13373113 (Version 5)
Quarter: 2017Q2

REPORT INFORMATION
  Report Type: Spontaneous
  Country: JP (occurrence: JP)
  Receive Date: 20170327
  Receipt Date: 20170418
  Transmission Date: 20170830
  Serious: Yes (Death, Hospitalization, Other)
  Sender: FDA-Public Use
  Company Number: JP-009507513-1703JPN002289J

PATIENT
  Age: 66 Year
  Sex: Female
  Weight: 52 kg

DRUGS (6)
  1. ASTOMIN [Concomitant]
     Active Substance: DIMEMORFAN
     Indication: LUNG ADENOCARCINOMA
     Dosage: 20 MG, TID
     Route: 048
     Dates: end: 20170323
  2. SOLU-MEDROL [Concomitant]
     Active Substance: METHYLPREDNISOLONE SODIUM SUCCINATE
     Indication: ENCEPHALITIS
     Dosage: 1000 MG, QD
     Route: 041
     Dates: start: 20170323, end: 20170324
  3. KEYTRUDA [Suspect]
     Active Substance: PEMBROLIZUMAB
     Indication: LUNG ADENOCARCINOMA STAGE IV
     Dosage: 200 MG, Q3W
     Route: 041
     Dates: start: 20170315, end: 20170328
  4. RADICUT [Concomitant]
     Active Substance: EDARAVONE
     Indication: TROUSSEAU^S SYNDROME
     Dosage: 30 MG, BID
     Route: 042
     Dates: start: 20170323, end: 20170328
  5. FRAGMIN [Concomitant]
     Active Substance: DALTEPARIN SODIUM
     Indication: TROUSSEAU^S SYNDROME
     Dosage: 4000 IU, QD
     Route: 042
     Dates: start: 20170323, end: 20170328
  6. SPIRIVA [Concomitant]
     Active Substance: TIOTROPIUM BROMIDE MONOHYDRATE
     Indication: EMPHYSEMA
     Dosage: 18 MICROGRAM, QD
     Route: 055
     Dates: start: 20170317, end: 20170323

REACTIONS (3)
  - Cerebral infarction [Fatal]
  - Disseminated intravascular coagulation [Fatal]
  - Trousseau^s syndrome [Fatal]

NARRATIVE: CASE EVENT DATE: 20170317
